FAERS Safety Report 4517109-4 (Version None)
Quarter: 2004Q4

REPORT INFORMATION
  Report Type: 
  Country: None (occurrence: None)
  Receive Date: 20041130
  Receipt Date: 20041116
  Transmission Date: 20050328
  Serious: Yes (Other)
  Sender: FDA-Public Use
  Company Number: DE_040814169

PATIENT
  Age: 65 Year
  Sex: Female

DRUGS (3)
  1. FORTEO [Suspect]
     Indication: OSTEOPOROSIS
     Dosage: 20 UG DAY
     Dates: start: 20040505
  2. ANTIEPILEPTIC AGENT [Concomitant]
  3. CALCIUM [Concomitant]

REACTIONS (5)
  - CONVULSION [None]
  - DEPRESSION [None]
  - DISORIENTATION [None]
  - MOUTH HAEMORRHAGE [None]
  - OSTEOPOROSIS [None]
